FAERS Safety Report 19380111 (Version 1)
Quarter: 2021Q2

REPORT INFORMATION
  Report Type: Report from Study
  Country: US (occurrence: US)
  Receive Date: 20210607
  Receipt Date: 20210607
  Transmission Date: 20210717
  Serious: Yes (Hospitalization, Other)
  Sender: FDA-Public Use
  Company Number: US-ADVANZ PHARMA-202105003913

PATIENT

DRUGS (3)
  1. DIPHENHYDRAMINE. [Concomitant]
     Active Substance: DIPHENHYDRAMINE
     Indication: SEDATION
     Dosage: UNK
  2. DIGOXIN. [Suspect]
     Active Substance: DIGOXIN
     Dosage: 450 UG
     Route: 037
  3. DEXMEDETOMIDINE. [Concomitant]
     Active Substance: DEXMEDETOMIDINE
     Indication: SEDATION
     Dosage: UNK

REACTIONS (6)
  - Seizure [Unknown]
  - Hypokalaemia [Unknown]
  - Muscular weakness [Unknown]
  - Encephalopathy [Unknown]
  - Electrocardiogram QT prolonged [Unknown]
  - Cerebrovascular accident [Unknown]
